FAERS Safety Report 12154320 (Version 1)
Quarter: 2016Q1

REPORT INFORMATION
  Report Type: Spontaneous
  Country: US (occurrence: None)
  Receive Date: 20160304
  Receipt Date: 20160304
  Transmission Date: 20160526
  Serious: No
  Sender: FDA-Public Use
  Company Number: None

PATIENT
  Age: 73 Year
  Sex: Male

DRUGS (2)
  1. ZYTIGA [Suspect]
     Active Substance: ABIRATERONE ACETATE
     Indication: PROSTATE CANCER
     Dosage: 1000 MG DAILY (4X250 MG), ONCE DAILY, PO
     Route: 048
     Dates: start: 20140519
  2. TRELSTAR [Concomitant]
     Active Substance: TRIPTORELIN PAMOATE

REACTIONS (4)
  - Constipation [None]
  - Dry skin [None]
  - Dry mouth [None]
  - Arthralgia [None]

NARRATIVE: CASE EVENT DATE: 20151001
